FAERS Safety Report 9383093 (Version 3)
Quarter: 2015Q1

REPORT INFORMATION
  Report Type: Report from Study
  Country: BR (occurrence: BR)
  Receive Date: 20130704
  Receipt Date: 20150127
  Transmission Date: 20150721
  Serious: Yes (Other)
  Sender: FDA-Public Use
  Company Number: BR-ROCHE-1241585

PATIENT
  Age: 65 Year
  Sex: Female
  Weight: 79.8 kg

DRUGS (12)
  1. SERETIDE [Suspect]
     Active Substance: FLUTICASONE FUROATE\SALMETEROL XINAFOATE
     Indication: BRONCHIAL DISORDER
     Dosage: 50/500 MICROGRAM
     Route: 065
     Dates: start: 200709, end: 200712
  2. XOLAIR [Suspect]
     Active Substance: OMALIZUMAB
     Indication: ASTHMA
     Route: 058
     Dates: start: 200712
  3. XOLAIR [Suspect]
     Active Substance: OMALIZUMAB
     Indication: BRONCHIAL DISORDER
     Route: 058
     Dates: start: 200809
  4. NAPRIX [Concomitant]
     Active Substance: RAMIPRIL
     Dosage: 5/12.5 MG
     Route: 048
     Dates: start: 2007
  5. XOLAIR [Suspect]
     Active Substance: OMALIZUMAB
     Route: 058
  6. MIFLASONE [Concomitant]
     Active Substance: BECLOMETHASONE DIPROPIONATE
     Route: 065
     Dates: start: 201305
  7. VERAPAMIL [Concomitant]
     Active Substance: VERAPAMIL HYDROCHLORIDE
     Route: 048
  8. XOLAIR [Suspect]
     Active Substance: OMALIZUMAB
     Route: 058
     Dates: start: 201207, end: 201207
  9. ATROVENT [Concomitant]
     Active Substance: IPRATROPIUM BROMIDE
  10. AEROLIN [Suspect]
     Active Substance: ALBUTEROL
     Indication: PRODUCT USED FOR UNKNOWN INDICATION
     Route: 065
  11. BUDESONIDE. [Concomitant]
     Active Substance: BUDESONIDE
  12. DUOVENT [Concomitant]
     Active Substance: FENOTEROL HYDROBROMIDE

REACTIONS (9)
  - Cough [Unknown]
  - Osteoarthritis [Recovering/Resolving]
  - Malaise [Unknown]
  - Exostosis [Recovering/Resolving]
  - Burning sensation [Unknown]
  - Fear [Recovering/Resolving]
  - Chest pain [Unknown]
  - Pain [Unknown]
  - Mycotic allergy [Unknown]

NARRATIVE: CASE EVENT DATE: 201207
